FAERS Safety Report 12761824 (Version 3)
Quarter: 2018Q4

REPORT INFORMATION
  Report Type: Spontaneous
  Country: US (occurrence: US)
  Receive Date: 20160920
  Receipt Date: 20181016
  Transmission Date: 20190204
  Serious: Yes (Other)
  Sender: FDA-Public Use
  Company Number: US-AMGEN-USASP2016123475

PATIENT
  Age: 50 Year
  Sex: Female

DRUGS (3)
  1. METHOTREXATE. [Suspect]
     Active Substance: METHOTREXATE
     Indication: PRODUCT USED FOR UNKNOWN INDICATION
     Dosage: UNK
     Route: 065
  2. ENBREL [Suspect]
     Active Substance: ETANERCEPT
     Indication: PSORIATIC ARTHROPATHY
     Dosage: UNK UNK, QWK
     Route: 065
     Dates: start: 2014
  3. ENBREL [Suspect]
     Active Substance: ETANERCEPT
     Indication: RHEUMATOID ARTHRITIS

REACTIONS (12)
  - Walking aid user [Unknown]
  - Drug effect decreased [Unknown]
  - Injection site pain [Unknown]
  - Arthropathy [Not Recovered/Not Resolved]
  - Injection site haemorrhage [Unknown]
  - Psoriatic arthropathy [Unknown]
  - Visual impairment [Unknown]
  - Peripheral swelling [Not Recovered/Not Resolved]
  - Limb discomfort [Unknown]
  - Wound [Recovered/Resolved]
  - Liver function test abnormal [Unknown]
  - Nail disorder [Unknown]

NARRATIVE: CASE EVENT DATE: 2018
